FAERS Safety Report 5577449-7 (Version None)
Quarter: 2007Q4

REPORT INFORMATION
  Report Type: 
  Country: None (occurrence: None)
  Receive Date: 20071228
  Receipt Date: 20071218
  Transmission Date: 20080405
  Serious: Yes (Life-Threatening, Hospitalization, Disabling, Other)
  Sender: FDA-Public Use
  Company Number: GB-PFIZER INC-2007107477

PATIENT
  Age: 74 Year
  Sex: Male

DRUGS (4)
  1. LIPITOR [Suspect]
     Indication: HYPERLIPIDAEMIA
     Route: 048
     Dates: start: 20061201, end: 20070914
  2. AMLODIPINE [Concomitant]
     Route: 048
  3. ACETYLSALICYLIC ACID SRT [Concomitant]
     Route: 048
  4. FLUOXETINE [Concomitant]
     Route: 048

REACTIONS (1)
  - PANCREATITIS NECROTISING [None]
